FAERS Safety Report 22331260 (Version 1)
Quarter: 2023Q2

REPORT INFORMATION
  Report Type: Report from Study
  Country: US (occurrence: None)
  Receive Date: 20230517
  Receipt Date: 20230517
  Transmission Date: 20230721
  Serious: Yes (Life-Threatening, Other)
  Sender: FDA-Public Use
  Company Number: US-ROCHE-3349242

PATIENT

DRUGS (38)
  1. RITUXIMAB [Suspect]
     Active Substance: RITUXIMAB
     Indication: Burkitt^s lymphoma
     Dosage: EVERY 21 DAYS FOR 6 CYCLES AS PER PROTOCOL?DURATION: 1.24 HOURS
     Route: 041
     Dates: start: 20141204, end: 20141204
  2. RITUXIMAB [Suspect]
     Active Substance: RITUXIMAB
     Dosage: EVERY 21 DAYS FOR 6 CYCLES AS PER PROTOCOL?DURATION: 1 HOURS
     Route: 041
     Dates: start: 20141226, end: 20141226
  3. RITUXIMAB [Suspect]
     Active Substance: RITUXIMAB
     Dosage: EVERY 21 DAYS FOR 6 CYCLES AS PER PROTOCOL?DURATION: 1 HOURS
     Route: 041
     Dates: start: 20150116, end: 20150116
  4. RITUXIMAB [Suspect]
     Active Substance: RITUXIMAB
     Dosage: EVERY 21 DAYS FOR 6 CYCLES AS PER PROTOCOL?DURATION: 3 HOURS
     Route: 041
     Dates: start: 20150206, end: 20150206
  5. RITUXIMAB [Suspect]
     Active Substance: RITUXIMAB
     Dosage: EVERY 21 DAYS FOR 6 CYCLES AS PER PROTOCOL?DURATION: 2.28 HOURS
     Route: 041
     Dates: start: 20150227, end: 20150227
  6. RITUXIMAB [Suspect]
     Active Substance: RITUXIMAB
     Dosage: EVERY 21 DAYS FOR 6 CYCLES AS PER PROTOCOL?DURATION: 30 MINUTES
     Route: 041
     Dates: start: 20150320, end: 20150320
  7. CYCLOPHOSPHAMIDE [Suspect]
     Active Substance: CYCLOPHOSPHAMIDE
     Indication: Burkitt^s lymphoma
     Dosage: EVERY 21 DAYS FOR 6 CYCLES AS PER PROTOCOL?DURATION: 3.43 HOURS
     Route: 042
     Dates: start: 20141208, end: 20141208
  8. CYCLOPHOSPHAMIDE [Suspect]
     Active Substance: CYCLOPHOSPHAMIDE
     Dosage: EVERY 21 DAYS FOR 6 CYCLES AS PER PROTOCOL?DURATION: 48 MINUTES
     Route: 042
     Dates: start: 20141230, end: 20141230
  9. CYCLOPHOSPHAMIDE [Suspect]
     Active Substance: CYCLOPHOSPHAMIDE
     Dosage: EVERY 21 DAYS FOR 6 CYCLES AS PER PROTOCOL?DURATION: 262 MINUTES
     Route: 042
     Dates: start: 20150120, end: 20150121
  10. CYCLOPHOSPHAMIDE [Suspect]
     Active Substance: CYCLOPHOSPHAMIDE
     Dosage: EVERY 21 DAYS FOR 6 CYCLES AS PER PROTOCOL?DURATION: 30 MINUTES
     Route: 042
     Dates: start: 20150210, end: 20150210
  11. CYCLOPHOSPHAMIDE [Suspect]
     Active Substance: CYCLOPHOSPHAMIDE
     Dosage: EVERY 21 DAYS FOR 6 CYCLES AS PER PROTOCOL?DURATION: 30 MINUTES
     Route: 042
     Dates: start: 20150303, end: 20150303
  12. CYCLOPHOSPHAMIDE [Suspect]
     Active Substance: CYCLOPHOSPHAMIDE
     Dosage: EVERY 21 DAYS FOR 6 CYCLES AS PER PROTOCOL?DURATION: 30 MINUTES
     Route: 042
     Dates: start: 20150324, end: 20150324
  13. DOXORUBICIN [Suspect]
     Active Substance: DOXORUBICIN
     Indication: Burkitt^s lymphoma
     Dosage: EVERY 21 DAYS FOR 6 CYCLES AS PER PROTOCOL?DURATION: 4 DAYS
     Route: 042
     Dates: start: 20141204, end: 20141207
  14. DOXORUBICIN [Suspect]
     Active Substance: DOXORUBICIN
     Dosage: EVERY 21 DAYS FOR 6 CYCLES AS PER PROTOCOL?DURATION: 96 HOURS
     Route: 042
     Dates: start: 20150320, end: 20150323
  15. DOXORUBICIN [Suspect]
     Active Substance: DOXORUBICIN
     Dosage: EVERY 21 DAYS FOR 6 CYCLES AS PER PROTOCOL?DURATION: 96 HOURS
     Route: 042
     Dates: start: 20150227, end: 20150302
  16. DOXORUBICIN [Suspect]
     Active Substance: DOXORUBICIN
     Dosage: EVERY 21 DAYS FOR 6 CYCLES AS PER PROTOCOL?DURATION: 4 DAYS
     Route: 042
     Dates: start: 20141226, end: 20141229
  17. DOXORUBICIN [Suspect]
     Active Substance: DOXORUBICIN
     Dosage: EVERY 21 DAYS FOR 6 CYCLES AS PER PROTOCOL?DURATION: 96 HOURS
     Route: 042
     Dates: start: 20150116, end: 20150119
  18. DOXORUBICIN [Suspect]
     Active Substance: DOXORUBICIN
     Dosage: EVERY 21 DAYS FOR 6 CYCLES AS PER PROTOCOL?DURATION: 96 HOURS
     Route: 042
     Dates: start: 20150206, end: 20150209
  19. ETOPOSIDE [Suspect]
     Active Substance: ETOPOSIDE
     Indication: Burkitt^s lymphoma
     Dosage: EVERY 21 DAYS FOR 6 CYCLES AS PER PROTOCOL?DURATION: 4 DAYS
     Route: 042
     Dates: start: 20141204, end: 20141207
  20. ETOPOSIDE [Suspect]
     Active Substance: ETOPOSIDE
     Dosage: EVERY 21 DAYS FOR 6 CYCLES AS PER PROTOCOL?DURATION: 4 DAYS
     Route: 042
     Dates: start: 20141226, end: 20141229
  21. ETOPOSIDE [Suspect]
     Active Substance: ETOPOSIDE
     Dosage: EVERY 21 DAYS FOR 6 CYCLES AS PER PROTOCOL?DURATION: 96 HOURS
     Route: 042
     Dates: start: 20150116, end: 20150119
  22. ETOPOSIDE [Suspect]
     Active Substance: ETOPOSIDE
     Dosage: EVERY 21 DAYS FOR 6 CYCLES AS PER PROTOCOL?DURATION: 96 HOURS
     Route: 042
     Dates: start: 20150206, end: 20150210
  23. ETOPOSIDE [Suspect]
     Active Substance: ETOPOSIDE
     Dosage: EVERY 21 DAYS FOR 6 CYCLES AS PER PROTOCOL?DURATION: 96 HOURS
     Route: 042
     Dates: start: 20150227, end: 20150302
  24. ETOPOSIDE [Suspect]
     Active Substance: ETOPOSIDE
     Dosage: EVERY 21 DAYS FOR 6 CYCLES AS PER PROTOCOL?DURATION: 96 HOURS
     Route: 042
     Dates: start: 20150320, end: 20150323
  25. FILGRASTIM [Suspect]
     Active Substance: FILGRASTIM
     Indication: Burkitt^s lymphoma
     Route: 065
     Dates: start: 20141209, end: 20141212
  26. METHOTREXATE [Suspect]
     Active Substance: METHOTREXATE
     Indication: Burkitt^s lymphoma
     Dosage: DURATION: 245 MINUTES
     Route: 065
     Dates: start: 20150117, end: 20150117
  27. METHOTREXATE [Suspect]
     Active Substance: METHOTREXATE
     Dosage: DURATION: 43 MINUTES
     Route: 065
     Dates: start: 20150210, end: 20150210
  28. METHOTREXATE [Suspect]
     Active Substance: METHOTREXATE
     Dosage: DURATION: 43 MINUTES
     Route: 065
     Dates: start: 20150206, end: 20150206
  29. METHOTREXATE [Suspect]
     Active Substance: METHOTREXATE
     Dosage: DURATION: 107 MINUTES
     Route: 065
     Dates: start: 20150303, end: 20150303
  30. METHOTREXATE [Suspect]
     Active Substance: METHOTREXATE
     Dosage: DURATION: 1 MINUTES
     Route: 065
     Dates: start: 20150227, end: 20150227
  31. METHOTREXATE [Suspect]
     Active Substance: METHOTREXATE
     Dosage: DURATION: 1 MINUTES
     Route: 065
     Dates: start: 20150320, end: 20150320
  32. METHOTREXATE [Suspect]
     Active Substance: METHOTREXATE
     Dosage: DURATION: 1 MINUTES
     Route: 065
     Dates: start: 20150324, end: 20150324
  33. VINCRISTINE [Suspect]
     Active Substance: VINCRISTINE
     Indication: Burkitt^s lymphoma
     Dosage: EVERY 21 DAYS FOR 6 CYCLES AS PER PROTOCOL?DURATION: 4 DAYS
     Route: 042
     Dates: start: 20141204, end: 20141207
  34. VINCRISTINE [Suspect]
     Active Substance: VINCRISTINE
     Dosage: EVERY 21 DAYS FOR 6 CYCLES AS PER PROTOCOL?DURATION: 96 HOURS
     Route: 042
     Dates: start: 20150320, end: 20150323
  35. VINCRISTINE [Suspect]
     Active Substance: VINCRISTINE
     Dosage: EVERY 21 DAYS FOR 6 CYCLES AS PER PROTOCOL?DURATION: 4 DAYS
     Route: 042
     Dates: start: 20141226, end: 20141229
  36. VINCRISTINE [Suspect]
     Active Substance: VINCRISTINE
     Dosage: EVERY 21 DAYS FOR 6 CYCLES AS PER PROTOCOL?DURATION: 96 HOURS
     Route: 042
     Dates: start: 20150116, end: 20150119
  37. VINCRISTINE [Suspect]
     Active Substance: VINCRISTINE
     Dosage: EVERY 21 DAYS FOR 6 CYCLES AS PER PROTOCOL?DURATION: 96 HOURS
     Route: 042
     Dates: start: 20150206, end: 20150209
  38. VINCRISTINE [Suspect]
     Active Substance: VINCRISTINE
     Dosage: EVERY 21 DAYS FOR 6 CYCLES AS PER PROTOCOL?DURATION: 96 HOURS
     Route: 042
     Dates: start: 20150227, end: 20150302

REACTIONS (2)
  - Anaemia [Recovered/Resolved]
  - White blood cell count decreased [Recovered/Resolved]

NARRATIVE: CASE EVENT DATE: 20141226
